FAERS Safety Report 13130422 (Version 5)
Quarter: 2017Q2

REPORT INFORMATION
  Report Type: Report from Study
  Country: US (occurrence: US)
  Receive Date: 20170119
  Receipt Date: 20170427
  Transmission Date: 20170830
  Serious: Yes (Hospitalization, Other)
  Sender: FDA-Public Use
  Company Number: US-PFIZER INC-2016585276

PATIENT
  Age: 37 Year
  Sex: Female

DRUGS (2)
  1. IBRANCE [Suspect]
     Active Substance: PALBOCICLIB
     Dosage: 125 MG, CYCLIC(DAILY; 3 WEEKS ON/ 1 WEEK OFF)
     Route: 048
  2. IBRANCE [Suspect]
     Active Substance: PALBOCICLIB
     Indication: BREAST CANCER
     Dosage: 125 MG, CYCLIC(DAILY; 3 WEEKS ON/ 1 WEEK OFF)
     Route: 048
     Dates: start: 20161212

REACTIONS (22)
  - Dry mouth [Unknown]
  - Diarrhoea [Unknown]
  - Dysstasia [Unknown]
  - Impaired driving ability [Unknown]
  - Pneumonia [Recovered/Resolved]
  - Fatigue [Unknown]
  - Weight decreased [Unknown]
  - Arthralgia [Not Recovered/Not Resolved]
  - Bone pain [Unknown]
  - Headache [Recovered/Resolved]
  - Dysgeusia [Unknown]
  - Myalgia [Unknown]
  - Decreased appetite [Unknown]
  - Sputum increased [Unknown]
  - Vomiting [Unknown]
  - Nausea [Recovered/Resolved]
  - Renal impairment [Unknown]
  - Dysphagia [Unknown]
  - Blood calcium decreased [Recovered/Resolved]
  - Hot flush [Recovered/Resolved]
  - Constipation [Unknown]
  - Alopecia [Unknown]
